FAERS Safety Report 20256953 (Version 3)
Quarter: 2022Q1

REPORT INFORMATION
  Report Type: Report from Study
  Country: US (occurrence: US)
  Receive Date: 20211230
  Receipt Date: 20220126
  Transmission Date: 20220423
  Serious: Yes (Hospitalization, Other)
  Sender: FDA-Public Use
  Company Number: US-ALNYLAM PHARMACEUTICALS, INC.-ALN-2021-003460

PATIENT

DRUGS (1)
  1. GIVLAARI [Suspect]
     Active Substance: GIVOSIRAN SODIUM
     Indication: Product used for unknown indication
     Dosage: 121.60 MILLIGRAM, MONTHLY
     Route: 058
     Dates: start: 20210325

REACTIONS (11)
  - Pancreatitis [Not Recovered/Not Resolved]
  - Seizure [Unknown]
  - Nephrolithiasis [Not Recovered/Not Resolved]
  - Ill-defined disorder [Not Recovered/Not Resolved]
  - Stress cardiomyopathy [Not Recovered/Not Resolved]
  - Porphyria acute [Not Recovered/Not Resolved]
  - Porphyria acute [Unknown]
  - Eating disorder [Not Recovered/Not Resolved]
  - COVID-19 [Not Recovered/Not Resolved]
  - Catheter site thrombosis [Unknown]
  - Product dose omission issue [Unknown]

NARRATIVE: CASE EVENT DATE: 20211203
